FAERS Safety Report 5407110-0 (Version None)
Quarter: 2007Q3

REPORT INFORMATION
  Report Type: 
  Country: None (occurrence: None)
  Receive Date: 20070807
  Receipt Date: 20070719
  Transmission Date: 20080115
  Serious: Yes (Other)
  Sender: FDA-Public Use
  Company Number: US-BAYER-200710775BWH

PATIENT
  Age: 76 Year
  Sex: Male
  Weight: 86 kg

DRUGS (10)
  1. LEVITRA [Suspect]
     Indication: ERECTILE DYSFUNCTION
     Dosage: TOTAL DAILY DOSE: 10 MG  UNIT DOSE: 20 MG
     Route: 048
     Dates: start: 20061001
  2. ENALAPRIL MALEATE [Concomitant]
     Indication: HYPERTENSION
  3. BETAMETHASONE DIP [Concomitant]
     Route: 061
  4. METOPROLOL TARTRATE [Concomitant]
     Route: 048
  5. SIMVASTATIN [Concomitant]
     Dosage: TOTAL DAILY DOSE: 40 MG
     Route: 048
  6. ASPIRIN [Concomitant]
     Route: 048
  7. TRIAMCINOLONE ACETATE [Concomitant]
     Route: 061
  8. ALCOHOL [Concomitant]
     Route: 048
  9. MULTI-VITAMIN [Concomitant]
  10. EYE VITAMIN [Concomitant]

REACTIONS (3)
  - COLOUR BLINDNESS [None]
  - MACULAR DEGENERATION [None]
  - VISUAL DISTURBANCE [None]
